FAERS Safety Report 7457056-1 (Version None)
Quarter: 2011Q2

REPORT INFORMATION
  Report Type: 
  Country: None (occurrence: None)
  Receive Date: 20110426
  Receipt Date: 20110411
  Transmission Date: 20111010
  Serious: Yes (Other)
  Sender: FDA-Public Use
  Company Number: ALA_01465_2011

PATIENT
  Sex: Female

DRUGS (1)
  1. METOCLOPRAMIDE [Suspect]
     Indication: PRODUCT USED FOR UNKNOWN INDICATION
     Dosage: 10 MG, FREQUENCY UNKNOWN, ORAL
     Route: 048
     Dates: start: 20070401, end: 20090501

REACTIONS (4)
  - DYSAESTHESIA [None]
  - ECONOMIC PROBLEM [None]
  - DYSKINESIA [None]
  - EMOTIONAL DISORDER [None]
